FAERS Safety Report 6828575-3 (Version None)
Quarter: 2010Q3

REPORT INFORMATION
  Report Type: 
  Country: None (occurrence: None)
  Receive Date: 20100709
  Receipt Date: 20070212
  Transmission Date: 20110219
  Serious: No
  Sender: FDA-Public Use
  Company Number: US-PFIZER INC-2007012486

PATIENT
  Sex: Female
  Weight: 52.16 kg

DRUGS (3)
  1. CHANTIX [Suspect]
     Indication: SMOKING CESSATION THERAPY
     Dates: start: 20070211
  2. LORTAB [Concomitant]
     Indication: INTERVERTEBRAL DISC PROTRUSION
  3. PROZAC [Concomitant]

REACTIONS (4)
  - ABDOMINAL DISCOMFORT [None]
  - ANXIETY [None]
  - DISCOMFORT [None]
  - HYPERHIDROSIS [None]
